FAERS Safety Report 14635342 (Version 1)
Quarter: 2018Q1

REPORT INFORMATION
  Report Type: Spontaneous
  Country: FR (occurrence: FR)
  Receive Date: 20180314
  Receipt Date: 20180314
  Transmission Date: 20180509
  Serious: Yes (Hospitalization)
  Sender: FDA-Public Use
  Company Number: FR-TEVA-2018-FR-866875

PATIENT
  Age: 84 Year
  Sex: Male
  Weight: 112 kg

DRUGS (14)
  1. VALACICLOVIR [Suspect]
     Active Substance: VALACYCLOVIR HYDROCHLORIDE
     Indication: PRODUCT USED FOR UNKNOWN INDICATION
     Route: 048
  2. TAREG [Concomitant]
     Active Substance: VALSARTAN
  3. FUROSEMIDE. [Concomitant]
     Active Substance: FUROSEMIDE
  4. GABAPENTINE [Concomitant]
     Active Substance: GABAPENTIN
  5. NEBIVOLOL. [Concomitant]
     Active Substance: NEBIVOLOL
  6. BACTRIM [Suspect]
     Active Substance: SULFAMETHOXAZOLE\TRIMETHOPRIM
     Indication: PRODUCT USED FOR UNKNOWN INDICATION
     Route: 048
  7. KARDEGIC [Concomitant]
     Active Substance: ASPIRIN DL-LYSINE
  8. CALCIDOSE VITAMINE D, POUDRE ORALE EN SACHET-DOSE [Concomitant]
     Active Substance: CALCIUM\CHOLECALCIFEROL
  9. ZYMAD [Concomitant]
     Active Substance: CHOLECALCIFEROL
  10. LEDERFOLINE [Concomitant]
     Active Substance: LEUCOVORIN CALCIUM
  11. ALPRAZOLAM. [Concomitant]
     Active Substance: ALPRAZOLAM
  12. REVLIMID [Suspect]
     Active Substance: LENALIDOMIDE
     Indication: PLASMA CELL MYELOMA
     Route: 005
  13. FINASTERIDE. [Concomitant]
     Active Substance: FINASTERIDE
  14. DEXAMETHASONE. [Suspect]
     Active Substance: DEXAMETHASONE
     Indication: PLASMA CELL MYELOMA
     Route: 048

REACTIONS (3)
  - Thrombocytopenia [Recovered/Resolved]
  - Drug eruption [Recovering/Resolving]
  - Acute kidney injury [Recovered/Resolved]
